FAERS Safety Report 6413894-5 (Version None)
Quarter: 2009Q4

REPORT INFORMATION
  Report Type: 
  Country: None (occurrence: None)
  Receive Date: 20091026
  Receipt Date: 20091015
  Transmission Date: 20100525
  Serious: Yes (Life-Threatening)
  Sender: FDA-Public Use
  Company Number: B0594346A

PATIENT
  Sex: Male
  Weight: 97 kg

DRUGS (1)
  1. VENTOLIN [Suspect]
     Indication: ASTHMA
     Route: 055

REACTIONS (11)
  - BURNING SENSATION [None]
  - CHOKING [None]
  - DEVICE BREAKAGE [None]
  - DYSPHAGIA [None]
  - DYSPNOEA [None]
  - EPISTAXIS [None]
  - INCORRECT STORAGE OF DRUG [None]
  - MALAISE [None]
  - OROPHARYNGEAL PAIN [None]
  - PRODUCT QUALITY ISSUE [None]
  - THROAT IRRITATION [None]
